FAERS Safety Report 6449113-3 (Version None)
Quarter: 2009Q4

REPORT INFORMATION
  Report Type: 
  Country: None (occurrence: None)
  Receive Date: 20091119
  Receipt Date: 20091119
  Transmission Date: 20100525
  Serious: No
  Sender: FDA-Public Use
  Company Number: None

PATIENT
  Sex: Female
  Weight: 72.5755 kg

DRUGS (1)
  1. LUNESTA [Suspect]
     Indication: SLEEP DISORDER THERAPY
     Dosage: 1 TABLET HS OCCLUSIVE DRESSING
     Route: 046
     Dates: start: 20091103, end: 20091103

REACTIONS (2)
  - CRYING [None]
  - SCREAMING [None]
